APPROVED DRUG PRODUCT: DICLOFENAC SODIUM
Active Ingredient: DICLOFENAC SODIUM
Strength: 100MG
Dosage Form/Route: TABLET, EXTENDED RELEASE;ORAL
Application: A076152 | Product #001
Applicant: AUROBINDO PHARMA USA INC
Approved: Dec 13, 2001 | RLD: No | RS: No | Type: DISCN